FAERS Safety Report 5091252-6 (Version None)
Quarter: 2006Q3

REPORT INFORMATION
  Report Type: 
  Country: None (occurrence: None)
  Receive Date: 20060824
  Receipt Date: 20060815
  Transmission Date: 20061208
  Serious: Yes (Death, Other)
  Sender: FDA-Public Use
  Company Number: 2006095735

PATIENT
  Age: 65 Year
  Sex: Male
  Weight: 94.8018 kg

DRUGS (14)
  1. LIPITOR [Suspect]
     Indication: DRUG USE FOR UNKNOWN INDICATION
  2. NIASPAN [Suspect]
     Indication: BLOOD CHOLESTEROL INCREASED
     Dosage: (1 IN 1 D), ORAL
     Route: 048
     Dates: start: 20060711
  3. NIASPAN [Suspect]
     Indication: HIGH DENSITY LIPOPROTEIN DECREASED
     Dosage: (1 IN 1 D), ORAL
     Route: 048
     Dates: start: 20060711
  4. TENORMIN [Suspect]
     Indication: TACHYCARDIA
     Dosage: 100 MG (1 IN 1 D), ORAL
     Route: 048
  5. GLUCOTROL [Suspect]
     Indication: DIABETES MELLITUS
     Dosage: 10 MG (1 IN 1 D), ORAL
     Route: 048
  6. LORAZEPAM [Suspect]
     Indication: DEPRESSION
     Dosage: 2 MG (1 IN 1 D), ORAL
     Route: 048
  7. TRAZODONE HCL [Suspect]
     Indication: DEPRESSION
     Dosage: 200 MG (1 IN 1 D), ORAL
     Route: 048
  8. EFFEXOR [Concomitant]
  9. LANOXIN [Concomitant]
  10. GLUCOPHAGE [Concomitant]
  11. ACTOS [Concomitant]
  12. LANTUS [Concomitant]
  13. TRICOR [Concomitant]
  14. WELLBUTRIN [Concomitant]

REACTIONS (5)
  - BLOOD GLUCOSE INCREASED [None]
  - CARDIAC ARREST [None]
  - FLUSHING [None]
  - INCORRECT DOSE ADMINISTERED [None]
  - MYOCARDIAL INFARCTION [None]
